APPROVED DRUG PRODUCT: HYTONE
Active Ingredient: HYDROCORTISONE
Strength: 1% **Federal Register determination that product was not discontinued or withdrawn for safety or effectiveness reasons**
Dosage Form/Route: CREAM;TOPICAL
Application: A080472 | Product #003
Applicant: VALEANT INTERNATIONAL BARBADOS SRL
Approved: Approved Prior to Jan 1, 1982 | RLD: Yes | RS: No | Type: DISCN